FAERS Safety Report 10617170 (Version 2)
Quarter: 2015Q2

REPORT INFORMATION
  Report Type: Spontaneous
  Country: US (occurrence: US)
  Receive Date: 20141201
  Receipt Date: 20150415
  Transmission Date: 20150821
  Serious: Yes (Hospitalization)
  Sender: FDA-Public Use
  Company Number: US-BAYER-2014-173353

PATIENT
  Age: 24 Year
  Sex: Female
  Weight: 48.53 kg

DRUGS (2)
  1. MIRENA [Suspect]
     Active Substance: LEVONORGESTREL
     Indication: CONTRACEPTION
     Dosage: 20 MCG/24HR, CONT
     Route: 015
     Dates: start: 20070919, end: 20121116
  2. TOPAMAX [Concomitant]
     Active Substance: TOPIRAMATE
     Indication: HEADACHE
     Dosage: 25 MG, UNK
     Route: 048

REACTIONS (8)
  - Scar [None]
  - Procedural pain [None]
  - Injury [None]
  - Post procedural discomfort [None]
  - Embedded device [None]
  - Uterine haemorrhage [None]
  - Pain [None]
  - Device difficult to use [None]

NARRATIVE: CASE EVENT DATE: 20121025
